FAERS Safety Report 8531657 (Version 3)
Quarter: 2012Q4

REPORT INFORMATION
  Report Type: 
  Country: FR (occurrence: FR)
  Receive Date: 20120426
  Receipt Date: 20121114
  Transmission Date: 20130627
  Serious: Yes (Hospitalization, Other)
  Sender: FDA-Public Use
  Company Number: FR-CELGENEUS-056-21880-12041770

PATIENT
  Age: 76 Year
  Sex: Male

DRUGS (11)
  1. REVLIMID [Suspect]
     Indication: MYELOMA RECURRENCE
     Route: 048
     Dates: start: 200807, end: 200907
  2. REVLIMID [Suspect]
     Dosage: 15 Milligram
     Route: 048
     Dates: start: 201001, end: 201104
  3. REVLIMID [Suspect]
     Dosage: 15 Milligram
     Route: 048
     Dates: end: 201204
  4. THALIDOMIDE [Suspect]
     Indication: MULTIPLE MYELOMA
     Route: 048
     Dates: start: 200603, end: 200707
  5. ALKERAN [Suspect]
     Indication: MULTIPLE MYELOMA
     Route: 041
     Dates: start: 200407, end: 200511
  6. VELCADE [Suspect]
     Indication: MULTIPLE MYELOMA
     Route: 058
     Dates: start: 200909, end: 201001
  7. DOXORUBICIN [Suspect]
     Indication: MULTIPLE MYELOMA
     Route: 041
     Dates: start: 200511, end: 200602
  8. VINCRISTINE [Suspect]
     Indication: MULTIPLE MYELOMA
     Route: 041
     Dates: start: 200511, end: 200602
  9. VINDESINE [Suspect]
     Indication: MULTIPLE MYELOMA
     Route: 041
     Dates: start: 200511, end: 200602
  10. CARMUSTINE [Suspect]
     Indication: MULTIPLE MYELOMA
     Route: 041
     Dates: start: 200511, end: 200602
  11. CYCLOPHOSPHAMID [Suspect]
     Indication: MULTIPLE MYELOMA
     Route: 041
     Dates: start: 200511, end: 200602

REACTIONS (2)
  - Squamous cell carcinoma of the tongue [Recovered/Resolved]
  - Plasma cell myeloma recurrent [Unknown]
